FAERS Safety Report 8311417-7 (Version None)
Quarter: 2012Q1

REPORT INFORMATION
  Report Type: 
  Country: None (occurrence: None)
  Receive Date: 20120315
  Receipt Date: 20101210
  Transmission Date: 20120608
  Serious: Yes (Hospitalization)
  Sender: FDA-Public Use
  Company Number: PHHY2010US84879

PATIENT
  Age: 58 Year
  Sex: Male

DRUGS (1)
  1. GILENYA [Suspect]
     Dosage: 0.5 MG, QD, ORAL
     Route: 048
     Dates: start: 20101206

REACTIONS (4)
  - MALAISE [None]
  - MULTIPLE SCLEROSIS RELAPSE [None]
  - HYPERHIDROSIS [None]
  - MUSCULAR WEAKNESS [None]
